FAERS Safety Report 9735408 (Version 2)
Quarter: 2013Q4

REPORT INFORMATION
  Report Type: Spontaneous
  Country: KR (occurrence: KR)
  Receive Date: 20131206
  Receipt Date: 20131206
  Transmission Date: 20140711
  Serious: Yes (Hospitalization)
  Sender: FDA-Public Use
  Company Number: KR-ASTELLAS-2013JP013046

PATIENT
  Age: 68 Year
  Sex: Male

DRUGS (5)
  1. XTANDI [Suspect]
     Dosage: 160 MG, UID/QD
     Route: 048
     Dates: start: 2013, end: 20131121
  2. XTANDI [Suspect]
     Dosage: 160 MG, UID/QD
     Route: 048
     Dates: start: 20131123
  3. DOCETAXEL [Concomitant]
     Route: 065
  4. ABIRATERONE [Concomitant]
     Route: 065
  5. MITOXANTRONE [Concomitant]
     Route: 065

REACTIONS (2)
  - Nausea [Recovered/Resolved]
  - Vomiting [Recovered/Resolved]
